FAERS Safety Report 18549142 (Version 1)
Quarter: 2020Q4

REPORT INFORMATION
  Report Type: Spontaneous
  Country: ES (occurrence: ES)
  Receive Date: 20201126
  Receipt Date: 20201126
  Transmission Date: 20210114
  Serious: Yes (Other)
  Sender: FDA-Public Use
  Company Number: ES-TEVA-2020-ES-1851665

PATIENT
  Age: 58 Year
  Sex: Female

DRUGS (3)
  1. PREGABALINA (3897A) [Suspect]
     Active Substance: PREGABALIN
     Indication: BACK PAIN
     Dosage: UNIT DOSE 75MG
     Route: 048
     Dates: start: 2011
  2. CALCIFEDIOL 0,266 MG 10 CAPSULAS [Concomitant]
     Indication: VITAMIN D DECREASED
     Dosage: UNIT DOSE 0.2MG
     Route: 048
     Dates: start: 20201002
  3. OMEPRAZOL 20 MG CAPSULA [Concomitant]
     Indication: DYSPEPSIA
     Dosage: UNIT DOSE 20MG
     Route: 048
     Dates: start: 20201002

REACTIONS (1)
  - Hypertransaminasaemia [Recovering/Resolving]

NARRATIVE: CASE EVENT DATE: 2011
